FAERS Safety Report 23564545 (Version 1)
Quarter: 2024Q1

REPORT INFORMATION
  Report Type: Report from Study
  Country: IT (occurrence: IT)
  Receive Date: 20240226
  Receipt Date: 20240226
  Transmission Date: 20240410
  Serious: Yes (Other)
  Sender: FDA-Public Use
  Company Number: None

PATIENT
  Age: 73 Year
  Sex: Male
  Weight: 73 kg

DRUGS (11)
  1. FLUOROURACIL [Suspect]
     Active Substance: FLUOROURACIL
     Indication: Colon cancer
     Dosage: DURING CYCLE 5 OF THERAPY THE PATIENT WAS ADMINISTERED, ON 12/13/23: 365 MG OF BEVACIZUMAB INTRAV...
     Route: 042
     Dates: start: 20231213, end: 20231214
  2. DEXAMETHASONE SODIUM PHOSPHATE [Concomitant]
     Active Substance: DEXAMETHASONE PHOSPHATE\DEXAMETHASONE SODIUM PHOSPHATE
     Indication: Product used for unknown indication
     Dosage: THE PATIENT TAKES VARCODES 4 MG, 1 TABLET PER DAY FOR THE FIRST THREE DAYS AFTER INFUSION THERAPY...
     Route: 048
     Dates: start: 20231214, end: 20231219
  3. BEVACIZUMAB [Suspect]
     Active Substance: BEVACIZUMAB
     Indication: Colon cancer
     Dosage: DURING CYCLE 5 OF THERAPY THE PATIENT WAS ADMINISTERED, ON 12/13/23: 365 MG OF BEVACIZUMAB INTRAV...
     Route: 042
     Dates: start: 20231213, end: 20231213
  4. JANUMET [Concomitant]
     Active Substance: METFORMIN HYDROCHLORIDE\SITAGLIPTIN PHOSPHATE
     Indication: Product used for unknown indication
     Dosage: THE PATIENT TAKES JANUMET 50/1000 MG, 2 TIMES A DAY.
     Route: 065
  5. JANUMET [Concomitant]
     Active Substance: METFORMIN HYDROCHLORIDE\SITAGLIPTIN PHOSPHATE
     Indication: Product used for unknown indication
     Dosage: THE PATIENT TAKES JANUMET 50/1000 MG, 2 TIMES A DAY
     Route: 048
  6. RAMIPRIL [Concomitant]
     Active Substance: RAMIPRIL
     Indication: Product used for unknown indication
     Dosage: THE PATIENT TAKES RAMIPRIL 5 MG, ONCE A DAY.
     Route: 048
  7. OXALIPLATIN [Suspect]
     Active Substance: OXALIPLATIN
     Indication: Bladder transitional cell carcinoma
     Dosage: DURING CYCLE 5 OF THERAPY THE PATIENT WAS ADMINISTERED, ON 12/13/23: 365 MG OF BEVACIZUMAB INTRAV...
     Route: 042
     Dates: start: 20231213, end: 20231213
  8. LANSOPRAZOLE [Concomitant]
     Active Substance: LANSOPRAZOLE
     Indication: Product used for unknown indication
     Dosage: THE PATIENT TAKES LANSOPRAZOLE 30 MG, 1 TIME PER DAY.
     Route: 048
  9. TAVOR [Concomitant]
     Indication: Product used for unknown indication
     Route: 065
  10. LEVOTHYROXINE SODIUM [Concomitant]
     Active Substance: LEVOTHYROXINE SODIUM
     Indication: Product used for unknown indication
     Dosage: THE PATIENT TAKES EUTIROX 100 MCG, 1 TIME A DAY.
     Route: 048
  11. LEVOLEUCOVORIN CALCIUM [Suspect]
     Active Substance: LEVOLEUCOVORIN CALCIUM
     Indication: Colon cancer
     Dosage: DURING CYCLE 5 OF THERAPY THE PATIENT WAS ADMINISTERED, ON 12/13/23: 365 MG OF BEVACIZUMAB INTRAV...
     Route: 042
     Dates: start: 20231213, end: 20231213

REACTIONS (1)
  - Blood pressure increased [Unknown]

NARRATIVE: CASE EVENT DATE: 20231214
